FAERS Safety Report 14739090 (Version 1)
Quarter: 2018Q2

REPORT INFORMATION
  Report Type: Spontaneous
  Country: US (occurrence: US)
  Receive Date: 20180410
  Receipt Date: 20180410
  Transmission Date: 20180711
  Serious: No
  Sender: FDA-Public Use
  Company Number: US-BIOGEN-2016BI00301032

PATIENT
  Sex: Female

DRUGS (1)
  1. TYSABRI [Suspect]
     Active Substance: NATALIZUMAB
     Indication: MULTIPLE SCLEROSIS
     Dosage: INFUSED FOR 1 HOUR
     Route: 042
     Dates: start: 20120706, end: 20160907

REACTIONS (16)
  - Temperature intolerance [Unknown]
  - Anger [Unknown]
  - Hyperhidrosis [Unknown]
  - Stress [Unknown]
  - Hair growth abnormal [Unknown]
  - Decreased immune responsiveness [Not Recovered/Not Resolved]
  - Insomnia [Unknown]
  - Confusional state [Unknown]
  - Irritability [Unknown]
  - Dizziness [Unknown]
  - Fatigue [Unknown]
  - Blister [Not Recovered/Not Resolved]
  - Tooth loss [Unknown]
  - Menopausal symptoms [Unknown]
  - Dysarthria [Unknown]
  - Nervousness [Unknown]
